FAERS Safety Report 8716223 (Version 2)
Quarter: 2013Q4

REPORT INFORMATION
  Report Type: Spontaneous
  Country: US (occurrence: US)
  Receive Date: 20120810
  Receipt Date: 20131031
  Transmission Date: 20140711
  Serious: Yes (Other)
  Sender: FDA-Public Use
  Company Number: US-MERCK-2011SP037975

PATIENT
  Age: 58 Year
  Sex: Female
  Weight: 99.32 kg

DRUGS (12)
  1. VICTRELIS [Suspect]
     Indication: HEPATITIS C
     Dosage: 200 MG- 4 CAPS TID
     Route: 048
     Dates: start: 20110610, end: 20110715
  2. VICTRELIS [Suspect]
     Indication: FATIGUE
  3. VICTRELIS [Suspect]
     Indication: LABORATORY TEST ABNORMAL
  4. RIBAPAK [Suspect]
     Indication: PRODUCT USED FOR UNKNOWN INDICATION
     Dosage: 600 MG EACH AM, 800 MG EACH PM
     Dates: start: 20110503, end: 20110715
  5. PEG-INTRON [Suspect]
     Indication: PRODUCT USED FOR UNKNOWN INDICATION
     Dosage: 150 MICROGRAM, QW
     Dates: start: 20110503, end: 20110715
  6. ANUSOL (BISMUTH SUBGALLATE (+) PRAMOXINE HYDROCHLORIDE) [Concomitant]
     Dosage: 2.5 %, UNK
  7. CENTRUM (MINERALS (UNSPECIFIED) (+) VITAMINS (UNSPECIFIED)) [Concomitant]
     Dosage: UNK
  8. DIOVAN [Concomitant]
     Dosage: 80 MG, UNK
  9. HYDROCORTISONE [Concomitant]
     Dosage: 1 %, UNK
  10. MIRALAX [Concomitant]
  11. SUPREP BOWEL PREP [Concomitant]
  12. XALATAN [Concomitant]

REACTIONS (1)
  - Anaemia [Recovered/Resolved]
